FAERS Safety Report 4662263-7 (Version None)
Quarter: 2005Q2

REPORT INFORMATION
  Report Type: 
  Country: None (occurrence: None)
  Receive Date: 20050512
  Receipt Date: 20050425
  Transmission Date: 20051028
  Serious: Yes (Death, Other)
  Sender: FDA-Public Use
  Company Number: US_0410106997

PATIENT
  Age: 25 Year
  Sex: Male
  Weight: 24.9478 kg

DRUGS (1)
  1. ZYPREXA [Suspect]
     Dates: start: 20030920

REACTIONS (4)
  - CONVULSION [None]
  - DRUG TOXICITY [None]
  - ELECTROCARDIOGRAM ABNORMAL [None]
  - LOSS OF CONSCIOUSNESS [None]
